FAERS Safety Report 5888302-3 (Version None)
Quarter: 2008Q3

REPORT INFORMATION
  Report Type: 
  Country: None (occurrence: None)
  Receive Date: 20080918
  Receipt Date: 20080908
  Transmission Date: 20090109
  Serious: Yes (Death, Life-Threatening, Hospitalization)
  Sender: FDA-Public Use
  Company Number: FR-ABBOTT-08P-056-0448961-01

PATIENT
  Sex: Male
  Weight: 100 kg

DRUGS (8)
  1. HUMIRA [Suspect]
     Indication: RHEUMATOID ARTHRITIS
     Route: 058
     Dates: start: 20031016, end: 20080419
  2. METHOTREXATE [Concomitant]
     Indication: RHEUMATOID ARTHRITIS
     Route: 030
     Dates: start: 20031030, end: 20080419
  3. PREDNISONE TAB [Concomitant]
     Indication: RHEUMATOID ARTHRITIS
     Route: 048
     Dates: start: 20070601, end: 20080419
  4. RABEPRAZOLE SODIUM [Concomitant]
     Indication: PROPHYLAXIS AGAINST GASTROINTESTINAL ULCER
     Route: 048
     Dates: start: 20080117, end: 20080419
  5. LEKOVIT CA [Concomitant]
     Indication: PROPHYLAXIS AGAINST GASTROINTESTINAL ULCER
     Route: 048
     Dates: start: 20070531, end: 20080419
  6. FOLIC ACID [Concomitant]
     Indication: RHEUMATOID ARTHRITIS
     Dates: start: 20040821, end: 20080419
  7. ACETAMINOPHEN [Concomitant]
     Indication: BRONCHIOLITIS
     Route: 048
     Dates: start: 20080201, end: 20080419
  8. AMOXICILLIN + CLAVULANATE POTASSIUM [Concomitant]
     Indication: BRONCHIOLITIS
     Route: 048
     Dates: start: 20080225, end: 20080419

REACTIONS (2)
  - HEPATIC ENCEPHALOPATHY [None]
  - HEPATIC NEOPLASM [None]
